FAERS Safety Report 22017561 (Version 1)
Quarter: 2023Q1

REPORT INFORMATION
  Report Type: Other
  Country: None (occurrence: AT)
  Receive Date: 20230221
  Receipt Date: 20230221
  Transmission Date: 20230417
  Serious: Yes (Hospitalization)
  Sender: FDA-Public Use
  Company Number: AT-B.Braun Medical Inc.-2138257

PATIENT
  Age: 23 Month
  Sex: Female

DRUGS (10)
  1. ACETAMINOPHEN [Suspect]
     Active Substance: ACETAMINOPHEN
     Indication: Pneumonia
  2. VANCOMYCIN [Suspect]
     Active Substance: VANCOMYCIN
  3. CEFUROXIME [Suspect]
     Active Substance: CEFUROXIME
  4. ALBUTEROL [Suspect]
     Active Substance: ALBUTEROL
  5. CEFTRIAXONE [Suspect]
     Active Substance: CEFTRIAXONE
  6. AZITHROMYCIN [Suspect]
     Active Substance: AZITHROMYCIN
  7. GENTAMICIN [Suspect]
     Active Substance: GENTAMICIN
  8. MEROPENEM [Suspect]
     Active Substance: MEROPENEM
  9. PIPERACILLIN AND TAZOBACTAM [Suspect]
     Active Substance: PIPERACILLIN SODIUM\TAZOBACTAM SODIUM
  10. CLINDAMYCIN [Suspect]
     Active Substance: CLINDAMYCIN

REACTIONS (2)
  - Drug ineffective [Unknown]
  - Drug reaction with eosinophilia and systemic symptoms [Unknown]
